FAERS Safety Report 21160227 (Version 2)
Quarter: 2022Q3

REPORT INFORMATION
  Report Type: Spontaneous
  Country: CA (occurrence: CA)
  Receive Date: 20220802
  Receipt Date: 20220824
  Transmission Date: 20221026
  Serious: Yes (Life-Threatening, Hospitalization)
  Sender: FDA-Public Use
  Company Number: None

PATIENT
  Age: 3 Year
  Sex: Male
  Weight: 17 kg

DRUGS (5)
  1. METHOTREXATE [Suspect]
     Active Substance: METHOTREXATE
     Indication: Chemotherapy
  2. ONCASPAR [Suspect]
     Active Substance: PEGASPARGASE
     Indication: Chemotherapy
     Route: 065
  3. CYTARABINE [Suspect]
     Active Substance: CYTARABINE
     Indication: Chemotherapy
     Dosage: POWDER FOR SOLUTION
     Route: 037
  4. THIOGUANINE [Suspect]
     Active Substance: THIOGUANINE
     Indication: Chemotherapy
  5. VINCRISTINE SULFATE [Suspect]
     Active Substance: VINCRISTINE SULFATE
     Indication: Chemotherapy

REACTIONS (1)
  - Febrile neutropenia [Recovered/Resolved]
